FAERS Safety Report 8306526-2 (Version None)
Quarter: 2012Q2

REPORT INFORMATION
  Report Type: 
  Country: None (occurrence: None)
  Receive Date: 20120424
  Receipt Date: 20120413
  Transmission Date: 20120825
  Serious: Yes (Hospitalization)
  Sender: FDA-Public Use
  Company Number: PT-PAR PHARMACEUTICAL, INC-2012SCPR004329

PATIENT

DRUGS (3)
  1. CLOZAPINE [Concomitant]
     Indication: SCHIZOPHRENIA
     Dosage: 400 MG, UNKNOWN
     Route: 065
  2. FLUVOXAMINE MALEATE [Concomitant]
     Indication: SCHIZOPHRENIA
     Dosage: UNK, UNKNOWN
     Route: 065
  3. PROPRANOLOL HYDROCHLORIDE [Suspect]
     Indication: TACHYCARDIA
     Dosage: UPTO 60 MG, / DAY
     Route: 065

REACTIONS (3)
  - PSORIASIS [None]
  - ACTIVITIES OF DAILY LIVING IMPAIRED [None]
  - METABOLIC SYNDROME [None]
